FAERS Safety Report 4691856-6 (Version None)
Quarter: 2005Q2

REPORT INFORMATION
  Report Type: 
  Country: None (occurrence: None)
  Receive Date: 20050608
  Receipt Date: 20040422
  Transmission Date: 20051028
  Serious: Yes (Other)
  Sender: FDA-Public Use
  Company Number: 358979

PATIENT

DRUGS (1)
  1. ACCUTANE [Suspect]
     Dosage: 10 MG 2 PER DAY
     Dates: start: 20040115, end: 20040212

REACTIONS (2)
  - ABORTION INDUCED [None]
  - DRUG EXPOSURE DURING PREGNANCY [None]
